FAERS Safety Report 10610175 (Version 2)
Quarter: 2015Q1

REPORT INFORMATION
  Report Type: Spontaneous
  Country: US (occurrence: US)
  Receive Date: 20141126
  Receipt Date: 20150204
  Transmission Date: 20150720
  Serious: No
  Sender: FDA-Public Use
  Company Number: US-PFIZER INC-2014322210

PATIENT
  Age: 66 Year
  Sex: Female

DRUGS (1)
  1. DUAVEE [Suspect]
     Active Substance: BAZEDOXIFENE ACETATE\ESTROGENS, CONJUGATED
     Indication: HOT FLUSH
     Dosage: 1 DF, 1X/DAY (20 MG BAZEDOXIFENE ACETATE/.45 MG CONJUGATED ESTROGENS)
     Dates: start: 20141102, end: 20141205

REACTIONS (1)
  - Drug ineffective [Unknown]
